FAERS Safety Report 15517387 (Version 1)
Quarter: 2018Q4

REPORT INFORMATION
  Report Type: Spontaneous
  Country: US (occurrence: US)
  Receive Date: 20181017
  Receipt Date: 20181017
  Transmission Date: 20190205
  Serious: No
  Sender: FDA-Public Use
  Company Number: US-US WORLDMEDS, LLC-USW201809-001321

PATIENT
  Age: 81 Year
  Sex: Male
  Weight: 113 kg

DRUGS (14)
  1. CRESTOR [Concomitant]
     Active Substance: ROSUVASTATIN CALCIUM
  2. METFORMIN [Concomitant]
     Active Substance: METFORMIN HYDROCHLORIDE
  3. SINEMET [Concomitant]
     Active Substance: CARBIDOPA\LEVODOPA
     Dosage: 25/100 MG
  4. XADAGO [Suspect]
     Active Substance: SAFINAMIDE MESYLATE
     Indication: PARKINSON^S DISEASE
     Route: 048
     Dates: start: 20180829
  5. COUMADIN [Concomitant]
     Active Substance: WARFARIN SODIUM
  6. INSULIN [Concomitant]
     Active Substance: INSULIN NOS
  7. K-PHOS [Concomitant]
     Active Substance: POTASSIUM PHOSPHATE, MONOBASIC
     Indication: GASTROOESOPHAGEAL REFLUX DISEASE
  8. ALDACTONE [Concomitant]
     Active Substance: SPIRONOLACTONE
  9. RAMIPRIL. [Concomitant]
     Active Substance: RAMIPRIL
  10. BABY ASPIRIN [Concomitant]
     Active Substance: ASPIRIN
  11. CARVEDILOL. [Concomitant]
     Active Substance: CARVEDILOL
     Indication: CARDIAC DISORDER
  12. XADAGO [Suspect]
     Active Substance: SAFINAMIDE MESYLATE
     Dosage: EXTRA PILL OF XADAGO (50 MG)
     Dates: start: 20180830
  13. LATANOPROST. [Concomitant]
     Active Substance: LATANOPROST
     Indication: EYE DISORDER
  14. COUMADIN [Concomitant]
     Active Substance: WARFARIN SODIUM

REACTIONS (1)
  - Extra dose administered [Unknown]

NARRATIVE: CASE EVENT DATE: 20180830
